FAERS Safety Report 5988373-X (Version None)
Quarter: 2008Q4

REPORT INFORMATION
  Report Type: 
  Country: None (occurrence: None)
  Receive Date: 20081204
  Receipt Date: 20081124
  Transmission Date: 20090506
  Serious: Yes (Hospitalization)
  Sender: FDA-Public Use
  Company Number: 20427

PATIENT
  Age: 65 Year
  Sex: Female

DRUGS (3)
  1. CYTARABINE [Suspect]
     Indication: ACUTE MYELOID LEUKAEMIA
     Dosage: 32.6 MG QD SC
     Route: 058
     Dates: start: 20080728, end: 20080825
  2. BACTRIM [Concomitant]
  3. FLUCONAZOLE [Concomitant]

REACTIONS (4)
  - ACUTE TONSILLITIS [None]
  - EPISTAXIS [None]
  - FEBRILE NEUTROPENIA [None]
  - PETECHIAE [None]
